FAERS Safety Report 6925579 (Version 3)
Quarter: 2020Q3

REPORT INFORMATION
  Report Type: Report from Study
  Country: US (occurrence: US)
  Receive Date: 20090303
  Receipt Date: 20090330
  Transmission Date: 20201105
  Serious: Yes (Death, Other)
  Sender: FDA-Public Use
  Company Number: US-ROCHE-617263

PATIENT
  Sex: Female

DRUGS (16)
  1. ASPIRIN. [Concomitant]
     Active Substance: ASPIRIN
     Dosage: TAKEN EVERY MORNING; DRUG NAME: ASPIRIN EC
     Dates: start: 20060123
  2. PRAVASTATIN SODIUM. [Concomitant]
     Active Substance: PRAVASTATIN SODIUM
     Dosage: EVERY EVENING
     Dates: start: 20061208
  3. BISACODYL. [Concomitant]
     Active Substance: BISACODYL
     Dosage: TAKEN AT NIGHT
  4. CELEXA [Concomitant]
     Active Substance: CITALOPRAM HYDROBROMIDE
     Dosage: TAKEN AT NIGHT
  5. IBANDRONIC ACID. [Suspect]
     Active Substance: IBANDRONIC ACID
     Indication: OSTEOPOROSIS
     Route: 048
     Dates: start: 20060619, end: 20080210
  6. GEMFIBROZIL. [Concomitant]
     Active Substance: GEMFIBROZIL
     Dates: start: 20060623
  7. DEXTROSE. [Concomitant]
     Active Substance: DEXTROSE
     Dosage: DRUG: ASCENTIA GLUCOSE DIS; USED AS DIRECTED TO SELF MONITOR GLUCOSE
     Dates: start: 20080821
  8. METFORMIN HYDROCHLORIDE. [Concomitant]
     Active Substance: METFORMIN HYDROCHLORIDE
     Dosage: TAKEN EXTRA TAB IN THE EVENING; DRUG: METFORMIN HCL
     Dates: start: 20060123
  9. GLYBURIDE. [Concomitant]
     Active Substance: GLYBURIDE
     Dates: start: 20060623
  10. SULFASALAZINE. [Concomitant]
     Active Substance: SULFASALAZINE
     Dates: start: 20060623
  11. CALCIUM [Concomitant]
     Active Substance: CALCIUM
     Dosage: DRUG NAME: CALCIUM 600 + D
     Dates: start: 20060623
  12. LACTULOSE. [Concomitant]
     Active Substance: LACTULOSE
     Dosage: DISSOLVED ONE PACKET IN LIQUID OF CHOICE DAILY
     Dates: start: 20060803
  13. FUROSEMIDE. [Concomitant]
     Active Substance: FUROSEMIDE
     Dates: start: 20081212
  14. EXELON [Concomitant]
     Active Substance: RIVASTIGMINE TARTRATE
     Dosage: DOSE: APPLIED 4.6 MG/ 24 H DAILY
     Dates: start: 20081031
  15. DOCUSATE SODIUM. [Concomitant]
     Active Substance: DOCUSATE SODIUM
     Dosage: TAKEN AT NIGHT
     Dates: start: 20060623
  16. TYLENOL [Concomitant]
     Active Substance: ACETAMINOPHEN
     Dates: start: 20080821

REACTIONS (2)
  - Adenocarcinoma [Unknown]
  - Metastatic neoplasm [Fatal]
